FAERS Safety Report 7850509-3 (Version None)
Quarter: 2011Q4

REPORT INFORMATION
  Report Type: 
  Country: None (occurrence: None)
  Receive Date: 20111026
  Receipt Date: 20111026
  Transmission Date: 20120403
  Serious: Yes (Other)
  Sender: FDA-Public Use
  Company Number: None

PATIENT
  Age: 33 Year
  Sex: Male
  Weight: 90.718 kg

DRUGS (1)
  1. CIPROFLOXACIN [Suspect]
     Indication: DIVERTICULITIS
     Dosage: 1 PILL
     Dates: start: 20110701, end: 20110714

REACTIONS (5)
  - TENDONITIS [None]
  - INSOMNIA [None]
  - MOVEMENT DISORDER [None]
  - PAIN IN EXTREMITY [None]
  - IMPAIRED WORK ABILITY [None]
